FAERS Safety Report 7567941-8 (Version None)
Quarter: 2011Q2

REPORT INFORMATION
  Report Type: 
  Country: None (occurrence: None)
  Receive Date: 20110623
  Receipt Date: 20110610
  Transmission Date: 20111010
  Serious: Yes (Life-Threatening)
  Sender: FDA-Public Use
  Company Number: CA-SANOFI-AVENTIS-2011SA036860

PATIENT
  Age: 74 Year
  Sex: Female

DRUGS (3)
  1. FERRLECIT [Suspect]
     Route: 042
     Dates: start: 20110201, end: 20110531
  2. ZOPICLONE [Concomitant]
     Route: 048
     Dates: start: 20110522
  3. QUININE SULFATE [Concomitant]
     Route: 048
     Dates: start: 20110325

REACTIONS (7)
  - ABDOMINAL PAIN [None]
  - HYPOTONIA [None]
  - HYPOTENSION [None]
  - MUSCLE SPASMS [None]
  - NAUSEA [None]
  - OXYGEN SATURATION DECREASED [None]
  - FAECAL INCONTINENCE [None]
